FAERS Safety Report 24533052 (Version 1)
Quarter: 2024Q4

REPORT INFORMATION
  Report Type: Other
  Country: US (occurrence: US)
  Receive Date: 20241022
  Receipt Date: 20241022
  Transmission Date: 20250115
  Serious: Yes (Hospitalization, Other)
  Sender: OMNIVIUM PHARMACEUTICALS LLC
  Company Number: US-Omnivium Pharmaceuticals LLC-2163478

PATIENT
  Age: 51 Year
  Sex: Male

DRUGS (1)
  1. NUMBRINO [Suspect]
     Active Substance: COCAINE HYDROCHLORIDE
     Indication: Product used for unknown indication

REACTIONS (4)
  - Toxic leukoencephalopathy [Unknown]
  - Drug abuse [Unknown]
  - Heart rate variability decreased [Recovering/Resolving]
  - Malignant catatonia [Recovered/Resolved]
